FAERS Safety Report 9893297 (Version 1)
Quarter: 2014Q1

REPORT INFORMATION
  Report Type: Spontaneous
  Country: US (occurrence: US)
  Receive Date: 20140213
  Receipt Date: 20140213
  Transmission Date: 20141002
  Serious: No
  Sender: FDA-Public Use
  Company Number: US-JNJFOC-20140119571

PATIENT
  Age: 56 Year
  Sex: Male
  Weight: 95.26 kg

DRUGS (6)
  1. SANDOZ FENTANYL TRANSDERMAL SYSTEM [Suspect]
     Indication: PAIN
     Dosage: INITIATED ON AN UNSPECIFIED DATE IN 2012 OR 2013
     Route: 062
  2. SANDOZ FENTANYL TRANSDERMAL SYSTEM [Suspect]
     Indication: PAIN
     Route: 062
  3. OXYCODONE [Concomitant]
     Indication: BACK PAIN
     Dosage: 30 MG TABLET
     Route: 048
     Dates: start: 2012
  4. LIPITOR [Concomitant]
     Indication: BLOOD CHOLESTEROL INCREASED
     Route: 048
     Dates: start: 1991
  5. ATENOLOL [Concomitant]
     Indication: HYPERTENSION
     Route: 048
     Dates: start: 1991
  6. DIAZEPAM [Concomitant]
     Indication: HYPERTENSION
     Route: 048
     Dates: start: 1991

REACTIONS (4)
  - Product adhesion issue [Unknown]
  - Wrong technique in drug usage process [Unknown]
  - Drug tolerance [Unknown]
  - Inappropriate schedule of drug administration [Unknown]
